FAERS Safety Report 13072003 (Version 1)
Quarter: 2016Q4

REPORT INFORMATION
  Report Type: Spontaneous
  Country: US (occurrence: US)
  Receive Date: 20161228
  Receipt Date: 20161228
  Transmission Date: 20170207
  Serious: Yes (Disabling)
  Sender: FDA-Public Use
  Company Number: None

PATIENT
  Age: 64 Year
  Sex: Male
  Weight: 83.25 kg

DRUGS (11)
  1. MULTIVITAMIN [Concomitant]
     Active Substance: VITAMINS
  2. TOPICAL SILVER GEL [Concomitant]
  3. ASPIRIN. [Concomitant]
     Active Substance: ASPIRIN
  4. CITRAZINE [Concomitant]
  5. MMS [Concomitant]
  6. VITAMIN D3 [Concomitant]
     Active Substance: CHOLECALCIFEROL
  7. VITAMIN B12 [Concomitant]
     Active Substance: CYANOCOBALAMIN
  8. CHANCA PIEDRA [Concomitant]
  9. GRAPE SEEN EXTRACT [Concomitant]
  10. TRAMADOL HCL 50 TEVA [Suspect]
     Active Substance: TRAMADOL HYDROCHLORIDE
     Indication: PAIN
     Dosage: ?          QUANTITY:1 TABLET(S);?
     Route: 048
     Dates: start: 20160926, end: 20161224
  11. FISH OIL [Concomitant]
     Active Substance: FISH OIL

REACTIONS (14)
  - Muscle tightness [None]
  - Hypoaesthesia [None]
  - Musculoskeletal pain [None]
  - Pain in extremity [None]
  - Arthralgia [None]
  - Malaise [None]
  - Asthenia [None]
  - Fatigue [None]
  - Anxiety [None]
  - Dizziness [None]
  - Gait disturbance [None]
  - Limb discomfort [None]
  - Coordination abnormal [None]
  - Paralysis [None]

NARRATIVE: CASE EVENT DATE: 20161225
